FAERS Safety Report 4730636-X (Version None)
Quarter: 2005Q3

REPORT INFORMATION
  Report Type: 
  Country: None (occurrence: None)
  Receive Date: 20050801
  Receipt Date: 20050715
  Transmission Date: 20060218
  Serious: Yes (Other)
  Sender: FDA-Public Use
  Company Number: US-SANOFI-SYNTHELABO-A03200502142

PATIENT
  Sex: Male
  Weight: 87.1 kg

DRUGS (14)
  1. PLAVIX [Suspect]
     Indication: STENT PLACEMENT
     Route: 048
     Dates: start: 20050628, end: 20050712
  2. BENEMID [Concomitant]
     Dosage: UNK
     Route: 048
  3. CARDIZEM CD [Concomitant]
     Dosage: UNK
     Route: 048
  4. FUROSEMIDE [Concomitant]
     Dosage: UNK
     Route: 048
  5. PRINIVIL [Concomitant]
     Dosage: UNK
     Route: 048
  6. ASPIRIN [Concomitant]
     Dosage: UNK
     Route: 048
  7. ZOCOR [Concomitant]
     Dosage: UNK
     Route: 048
  8. TYLENOL (CAPLET) [Concomitant]
     Dosage: UNK
     Route: 048
  9. HYDROCHLOROTHIAZIDE [Concomitant]
     Dosage: UNK
     Route: 048
  10. NITROGLYCERIN [Concomitant]
     Dosage: UNK
     Route: 048
  11. NITROGLYN 2% OINTMENT [Concomitant]
     Dosage: UNK
     Route: 061
  12. TOPROL-XL [Concomitant]
     Dosage: UNK
     Route: 048
  13. ASCORBIC ACID [Concomitant]
     Dosage: UNK
     Route: 048
  14. MULTI-VITAMIN [Concomitant]
     Dosage: UNK
     Route: 048

REACTIONS (9)
  - ARTHRALGIA [None]
  - FALL [None]
  - INSOMNIA [None]
  - PAIN IN EXTREMITY [None]
  - PYREXIA [None]
  - RED BLOOD CELL SEDIMENTATION RATE INCREASED [None]
  - SERUM SICKNESS [None]
  - SHOULDER PAIN [None]
  - WHITE BLOOD CELL COUNT INCREASED [None]
